FAERS Safety Report 9678457 (Version 2)
Quarter: 2013Q4

REPORT INFORMATION
  Report Type: Spontaneous
  Country: GB (occurrence: GB)
  Receive Date: 20131108
  Receipt Date: 20131210
  Transmission Date: 20140711
  Serious: Yes (Other)
  Sender: FDA-Public Use
  Company Number: GB-BRISTOL-MYERS SQUIBB COMPANY-19766864

PATIENT
  Age: 50 Year
  Sex: Male

DRUGS (1)
  1. BYDUREON [Suspect]
     Indication: DIABETES MELLITUS
     Dates: start: 201306

REACTIONS (6)
  - Injection site cellulitis [Unknown]
  - Phobia [Unknown]
  - Injection site mass [Unknown]
  - Nausea [Unknown]
  - Injection site pain [Unknown]
  - Injection site haemorrhage [Unknown]
